FAERS Safety Report 19686438 (Version 3)
Quarter: 2021Q3

REPORT INFORMATION
  Report Type: Report from Study
  Country: RU (occurrence: RU)
  Receive Date: 20210811
  Receipt Date: 20210827
  Transmission Date: 20211014
  Serious: Yes (Life-Threatening, Hospitalization)
  Sender: FDA-Public Use
  Company Number: RU-GLAXOSMITHKLINE-RU2021167782

PATIENT
  Age: 74 Year
  Sex: Male
  Weight: 67 kg

DRUGS (12)
  1. MOXONIDIN [Concomitant]
     Active Substance: MOXONIDINE
     Indication: HYPERTENSION
     Dosage: 0.2 MG, BID
     Route: 048
     Dates: start: 20210624
  2. PREDNISOLONE. [Concomitant]
     Active Substance: PREDNISOLONE
     Dosage: UNK
     Dates: start: 20210622, end: 20210622
  3. DOSTARLIMAB [Suspect]
     Active Substance: DOSTARLIMAB
     Indication: NON-SMALL CELL LUNG CANCER
     Dosage: DOSE AT CYCLE 1 ? DAY 1
     Dates: start: 20210601, end: 20210601
  4. CARDIOMAGNYL [Concomitant]
     Active Substance: ASPIRIN\MAGNESIUM HYDROXIDE
     Indication: CORONARY ARTERY DISEASE
     Dosage: 75 MG, QD
     Route: 048
     Dates: start: 2019
  5. LOSARTAN. [Concomitant]
     Active Substance: LOSARTAN
     Indication: HYPERTENSION
     Dosage: 50 MG, QD
     Route: 048
     Dates: start: 2019
  6. MEROPENEM. [Concomitant]
     Active Substance: MEROPENEM
     Indication: PNEUMONIA
     Dosage: 1 G, BID
     Route: 042
     Dates: start: 20210705, end: 20210715
  7. AMLODIPIN [Concomitant]
     Active Substance: AMLODIPINE BESYLATE
     Indication: CARDIAC DISORDER
     Dosage: 5 MG, QD
     Route: 048
     Dates: start: 20210715
  8. AMLODIPIN [Concomitant]
     Active Substance: AMLODIPINE BESYLATE
     Indication: CORONARY ARTERY DISEASE
     Dosage: 10 MG, QD
     Route: 048
     Dates: start: 20210623, end: 20210715
  9. CLEXAN [Concomitant]
     Active Substance: ENOXAPARIN SODIUM
     Indication: PRODUCT USED FOR UNKNOWN INDICATION
     Dosage: 0.6 ML, BID
     Route: 058
     Dates: start: 20210708, end: 20210715
  10. SORBIFER [Concomitant]
     Indication: ANAEMIA
     Dosage: 320 MG, BID
     Route: 048
     Dates: start: 20210622, end: 20210701
  11. VANCOMYCIN [Concomitant]
     Active Substance: VANCOMYCIN
     Indication: PNEUMONIA
     Dosage: 1 G (FREQUENCY = OTHER: ONCE IN THREE DAYS)
     Route: 042
     Dates: start: 20210708, end: 20210715
  12. DOCETAXEL (NON?GSK COMPARATOR) [Suspect]
     Active Substance: DOCETAXEL
     Indication: NON-SMALL CELL LUNG CANCER
     Dosage: DOSE AT CYCLE 1 ? DAY 1
     Route: 042
     Dates: start: 20210601, end: 20210601

REACTIONS (1)
  - Acute kidney injury [Recovered/Resolved]

NARRATIVE: CASE EVENT DATE: 20210623
